FAERS Safety Report 9449226 (Version 2)
Quarter: 2013Q4

REPORT INFORMATION
  Report Type: Spontaneous
  Country: US (occurrence: None)
  Receive Date: 20130806
  Receipt Date: 20131016
  Transmission Date: 20140711
  Serious: Yes (Hospitalization, Other)
  Sender: FDA-Public Use
  Company Number: US-012545

PATIENT
  Age: 71 Year
  Sex: Male
  Weight: 119.3 kg

DRUGS (17)
  1. DEGRELIX [Suspect]
     Indication: PRODUCT USED FOR UNKNOWN INDICATION
     Dates: start: 20130610, end: 20130610
  2. PRADAXA [Concomitant]
  3. AMIODARONE [Concomitant]
  4. COREG [Concomitant]
  5. CYMBALTA [Concomitant]
  6. DIOVAN [Concomitant]
  7. FENOFIBRATE [Concomitant]
  8. HUMALOG [Concomitant]
  9. LANTUS [Concomitant]
  10. NIFEDICAL XL [Concomitant]
  11. PROTONIX [Concomitant]
  12. PRAMIPEXOLE [Concomitant]
  13. ZOCOR [Concomitant]
  14. FUROSEMIDE [Concomitant]
  15. VITAMIN C /00008004/ [Concomitant]
  16. VITAMIN D NOS [Concomitant]
  17. ELIGARD [Concomitant]

REACTIONS (6)
  - Renal failure [None]
  - Headache [None]
  - Drug ineffective [None]
  - Injection site swelling [None]
  - Injection site pain [None]
  - Drug administered at inappropriate site [None]
